FAERS Safety Report 4316472-7 (Version None)
Quarter: 2004Q1

REPORT INFORMATION
  Report Type: 
  Country: None (occurrence: None)
  Receive Date: 20040311
  Receipt Date: 20040227
  Transmission Date: 20041129
  Serious: Yes (Other)
  Sender: FDA-Public Use
  Company Number: AU-JNJFOC-20040203501

PATIENT
  Age: 93 Year
  Sex: Female

DRUGS (2)
  1. RISPERDAL [Suspect]
  2. LOSEC (OMEPRAZOLE) [Concomitant]

REACTIONS (2)
  - HEPATITIS [None]
  - LYMPHOPENIA [None]
